FAERS Safety Report 19788630 (Version 1)
Quarter: 2021Q3

REPORT INFORMATION
  Report Type: Spontaneous
  Country: DE (occurrence: DE)
  Receive Date: 20210904
  Receipt Date: 20210904
  Transmission Date: 20211014
  Serious: Yes (Other)
  Sender: FDA-Public Use
  Company Number: DE-AUROBINDO-AUR-APL-2020-055667

PATIENT
  Age: 60 Year
  Sex: Male
  Weight: 64 kg

DRUGS (43)
  1. FOLINIC ACID [Suspect]
     Active Substance: LEUCOVORIN
     Dosage: 365 MILLIGRAM
     Route: 065
     Dates: start: 20200706
  2. FLUOROURACIL. [Suspect]
     Active Substance: FLUOROURACIL
     Indication: COLORECTAL CANCER METASTATIC
     Dosage: 2110 MILLIGRAM
     Route: 042
     Dates: start: 20200427
  3. FLUOROURACIL. [Suspect]
     Active Substance: FLUOROURACIL
     Dosage: 4370  MILLIGRAM
     Route: 042
     Dates: start: 20200817
  4. FLUOROURACIL. [Suspect]
     Active Substance: FLUOROURACIL
     Dosage: 4045 MILLIGRAM
     Route: 042
     Dates: start: 20201214
  5. VECTIBIX [Suspect]
     Active Substance: PANITUMUMAB
     Dosage: 380 MILLIGRAM
     Route: 042
     Dates: start: 20201012
  6. VECTIBIX [Suspect]
     Active Substance: PANITUMUMAB
     Dosage: 375 MILLIGRAM
     Route: 042
     Dates: start: 20210626
  7. FOLINIC ACID [Suspect]
     Active Substance: LEUCOVORIN
     Dosage: 740 MILLIGRAM
     Route: 065
     Dates: start: 20200803
  8. FOLINIC ACID [Suspect]
     Active Substance: LEUCOVORIN
     Dosage: 690 MILLIGRAM
     Route: 065
     Dates: start: 20201026
  9. FLUOROURACIL. [Suspect]
     Active Substance: FLUOROURACIL
     Dosage: 735 MILLIGRAM
     Route: 040
     Dates: start: 20200706
  10. FLUOROURACIL. [Suspect]
     Active Substance: FLUOROURACIL
     Dosage: 710 MILLIGRAM
     Route: 040
     Dates: start: 20200928
  11. FLUOROURACIL. [Suspect]
     Active Substance: FLUOROURACIL
     Dosage: 4225 MILLIGRAM
     Route: 042
     Dates: start: 20201012
  12. FOLINIC ACID [Suspect]
     Active Substance: LEUCOVORIN
     Dosage: 710 MILLIGRAM
     Route: 065
     Dates: start: 20210317
  13. FLUOROURACIL. [Suspect]
     Active Substance: FLUOROURACIL
     Dosage: 730 MILLIGRAM
     Route: 040
     Dates: start: 20200817
  14. VECTIBIX [Suspect]
     Active Substance: PANITUMUMAB
     Dosage: 400 MILLIGRAM
     Route: 042
     Dates: start: 20200817
  15. VECTIBIX [Suspect]
     Active Substance: PANITUMUMAB
     Dosage: 350 MILLIGRAM
     Route: 042
     Dates: start: 20201214
  16. FOLINIC ACID [Suspect]
     Active Substance: LEUCOVORIN
     Indication: COLORECTAL CANCER METASTATIC
     Dosage: 350 MILLIGRAM
     Route: 065
     Dates: start: 20200427
  17. FOLINIC ACID [Suspect]
     Active Substance: LEUCOVORIN
     Dosage: 730 MILLIGRAM
     Route: 065
     Dates: start: 20200817
  18. FLUOROURACIL. [Suspect]
     Active Substance: FLUOROURACIL
     Dosage: 4270 MILLIGRAM
     Route: 042
     Dates: start: 20200928
  19. FLUOROURACIL. [Suspect]
     Active Substance: FLUOROURACIL
     Dosage: 700 MILLIGRAM
     Route: 040
     Dates: start: 20201012
  20. VECTIBIX [Suspect]
     Active Substance: PANITUMUMAB
     Dosage: 390 MILLIGRAM
     Route: 042
     Dates: start: 20200928
  21. VECTIBIX [Suspect]
     Active Substance: PANITUMUMAB
     Dosage: 365 MILLIGRAM
     Route: 042
     Dates: start: 20201026
  22. FOLINIC ACID [Suspect]
     Active Substance: LEUCOVORIN
     Dosage: 680 MILLIGRAM
     Route: 065
     Dates: start: 20201214
  23. OXALIPLATIN. [Suspect]
     Active Substance: OXALIPLATIN
     Indication: COLORECTAL CANCER METASTATIC
     Dosage: 150 MILLIGRAM
     Route: 065
     Dates: start: 20200427
  24. FLUOROURACIL. [Suspect]
     Active Substance: FLUOROURACIL
     Dosage: 4440 MILLIGRAM
     Route: 042
     Dates: start: 20200803
  25. FLUOROURACIL. [Suspect]
     Active Substance: FLUOROURACIL
     Dosage: 690 MILLIGRAM
     Route: 040
     Dates: start: 20201026
  26. FLUOROURACIL. [Suspect]
     Active Substance: FLUOROURACIL
     Dosage: 710 MILLIGRAM
     Route: 040
     Dates: start: 20210317
  27. VECTIBIX [Suspect]
     Active Substance: PANITUMUMAB
     Dosage: 425 MILLIGRAM
     Route: 042
     Dates: start: 20200706
  28. FLUOROURACIL. [Suspect]
     Active Substance: FLUOROURACIL
     Dosage: 700 MILLIGRAM
     Route: 040
     Dates: start: 20200427
  29. FLUOROURACIL. [Suspect]
     Active Substance: FLUOROURACIL
     Dosage: 2125 MILLIGRAM
     Route: 042
     Dates: start: 20200608
  30. FLUOROURACIL. [Suspect]
     Active Substance: FLUOROURACIL
     Dosage: 4150 MILLIGRAM
     Route: 042
     Dates: start: 20201026
  31. FLUOROURACIL. [Suspect]
     Active Substance: FLUOROURACIL
     Dosage: 680 MILLIGRAM
     Route: 040
     Dates: start: 20201214
  32. VECTIBIX [Suspect]
     Active Substance: PANITUMUMAB
     Indication: COLORECTAL CANCER METASTATIC
     Dosage: 380 MILLIGRAM
     Route: 042
     Dates: start: 20200427
  33. VECTIBIX [Suspect]
     Active Substance: PANITUMUMAB
     Dosage: 385 MILLIGRAM
     Route: 042
     Dates: start: 20200608
  34. VECTIBIX [Suspect]
     Active Substance: PANITUMUMAB
     Dosage: 365 MILLIGRAM
     Route: 042
     Dates: start: 20201230
  35. VECTIBIX [Suspect]
     Active Substance: PANITUMUMAB
     Dosage: 385 MILLIGRAM
     Route: 042
     Dates: start: 20210317
  36. VECTIBIX [Suspect]
     Active Substance: PANITUMUMAB
     Dosage: 395 MILLIGRAM
     Route: 042
     Dates: start: 20210720
  37. FOLINIC ACID [Suspect]
     Active Substance: LEUCOVORIN
     Dosage: 710 MILLIGRAM
     Route: 065
     Dates: start: 20200928
  38. FOLINIC ACID [Suspect]
     Active Substance: LEUCOVORIN
     Dosage: 700 MILLIGRAM
     Route: 065
     Dates: start: 20201012
  39. FLUOROURACIL. [Suspect]
     Active Substance: FLUOROURACIL
     Dosage: 740 MILLIGRAM
     Route: 040
     Dates: start: 20200803
  40. FLUOROURACIL. [Suspect]
     Active Substance: FLUOROURACIL
     Dosage: 4250 MILLIGRAM
     Route: 042
     Dates: start: 20210317
  41. OXALIPLATIN. [Suspect]
     Active Substance: OXALIPLATIN
     Dosage: 155 MILLIGRAM
     Route: 065
     Dates: start: 20200706
  42. FLUOROURACIL. [Suspect]
     Active Substance: FLUOROURACIL
     Dosage: 2220 MILLIGRAM
     Route: 042
     Dates: start: 20200706
  43. VECTIBIX [Suspect]
     Active Substance: PANITUMUMAB
     Dosage: 350 MILLIGRAM
     Route: 042
     Dates: start: 20210128

REACTIONS (4)
  - Dry skin [Not Recovered/Not Resolved]
  - Hypocalcaemia [Recovering/Resolving]
  - Hypokalaemia [Recovered/Resolved]
  - Thrombosis [Recovered/Resolved]

NARRATIVE: CASE EVENT DATE: 202010
